FAERS Safety Report 12303184 (Version 2)
Quarter: 2018Q1

REPORT INFORMATION
  Report Type: Spontaneous
  Country: US (occurrence: US)
  Receive Date: 20160426
  Receipt Date: 20180118
  Transmission Date: 20180508
  Serious: No
  Sender: FDA-Public Use
  Company Number: US-JNJFOC-20160406330

PATIENT
  Sex: Male

DRUGS (6)
  1. RISPERDAL [Suspect]
     Active Substance: RISPERIDONE
     Indication: BIPOLAR DISORDER
     Dosage: VARYING DOSE OF 1MG, 2MG AND 3MG
     Route: 048
     Dates: start: 20080913, end: 20091201
  2. RISPERDAL [Suspect]
     Active Substance: RISPERIDONE
     Indication: SOCIAL ANXIETY DISORDER
     Dosage: VARYING DOSE OF 2MG, 3MG AND 4MG
     Route: 048
     Dates: start: 20090930, end: 20150706
  3. RISPERDAL [Suspect]
     Active Substance: RISPERIDONE
     Indication: BIPOLAR DISORDER
     Dosage: VARYING DOSE OF 2MG, 3MG AND 4MG
     Route: 048
     Dates: start: 20090930, end: 20150706
  4. RISPERDAL [Suspect]
     Active Substance: RISPERIDONE
     Indication: SCHIZOAFFECTIVE DISORDER
     Dosage: VARYING DOSE OF 1MG, 2MG AND 3MG
     Route: 048
     Dates: start: 20080913, end: 20091201
  5. RISPERDAL [Suspect]
     Active Substance: RISPERIDONE
     Indication: SOCIAL ANXIETY DISORDER
     Dosage: VARYING DOSE OF 1MG, 2MG AND 3MG
     Route: 048
     Dates: start: 20080913, end: 20091201
  6. RISPERDAL [Suspect]
     Active Substance: RISPERIDONE
     Indication: SCHIZOAFFECTIVE DISORDER
     Dosage: VARYING DOSE OF 2MG, 3MG AND 4MG
     Route: 048
     Dates: start: 20090930, end: 20150706

REACTIONS (2)
  - Gynaecomastia [Unknown]
  - Abnormal weight gain [Unknown]

NARRATIVE: CASE EVENT DATE: 2008
